FAERS Safety Report 17105696 (Version 1)
Quarter: 2019Q4

REPORT INFORMATION
  Report Type: Spontaneous
  Country: GB (occurrence: GB)
  Receive Date: 20191203
  Receipt Date: 20191203
  Transmission Date: 20200122
  Serious: Yes (Other)
  Sender: FDA-Public Use
  Company Number: GB-TEVA-2019-GB-1144269

PATIENT
  Age: 96 Year
  Sex: Female
  Weight: 41 kg

DRUGS (10)
  1. LATANOPROST. [Concomitant]
     Active Substance: LATANOPROST
     Dosage: AT NIGHT , 2 GTT 1 DAYS
     Dates: start: 20190531
  2. PROCHLORPERAZINE. [Concomitant]
     Active Substance: PROCHLORPERAZINE
     Dosage: USE ONE OR TWO TABLETS TWICE DAILY
     Dates: start: 20191014
  3. PIROXICAM. [Concomitant]
     Active Substance: PIROXICAM
     Dosage: 3 DOSAGE FORMS 1 DAYS
     Dates: start: 20190531
  4. LAXIDO [Concomitant]
     Active Substance: POLYETHYLENE GLYCOL 3350\POTASSIUM CHLORIDE\SODIUM BICARBONATE\SODIUM CHLORIDE
     Dosage: 1-2 DAILY
     Dates: start: 20191014
  5. LORAZEPAM. [Suspect]
     Active Substance: LORAZEPAM
     Indication: AGITATION
     Dosage: BED TIME , 0.5 DOSAGE FORMS 1 DAYS
     Dates: start: 20191024
  6. CALCITRIOL. [Concomitant]
     Active Substance: CALCITRIOL
     Dosage: 1 DOSAGE FORMS 1 DAYS
     Dates: start: 20190531
  7. THE 50:50 OINTMENT [Concomitant]
     Dosage: USE AS DIRECTED
     Dates: start: 20190816
  8. DERMOL [Concomitant]
     Active Substance: BENZALKONIUM CHLORIDE\CHLORHEXIDINE HYDROCHLORIDE\ISOPROPYL MYRISTATE\PARAFFIN
     Dosage: 3 DOSAGE FORMS 1 DAYS
     Dates: start: 20190531
  9. AMOXICILLIN. [Concomitant]
     Active Substance: AMOXICILLIN
     Dosage: 6 DOSAGE FORMS 1 DAYS
     Dates: start: 20191014, end: 20191021
  10. NUTRITIONAL SUPPLEMENT [Concomitant]
     Active Substance: DIETARY SUPPLEMENT
     Dosage: 3 DOSAGE FORMS 1 DAYS
     Dates: start: 20191024

REACTIONS (2)
  - Hallucinations, mixed [Recovering/Resolving]
  - Sedation complication [Unknown]

NARRATIVE: CASE EVENT DATE: 20191025
